FAERS Safety Report 8121275-1 (Version None)
Quarter: 2012Q1

REPORT INFORMATION
  Report Type: 
  Country: None (occurrence: None)
  Receive Date: 20120208
  Receipt Date: 20120131
  Transmission Date: 20120608
  Serious: Yes (Hospitalization)
  Sender: FDA-Public Use
  Company Number: US-MYLANLABS-2012S1002379

PATIENT
  Sex: Male

DRUGS (2)
  1. METFORMIN HCL [Suspect]
     Route: 048
  2. NAPROXEN (ALEVE) [Suspect]
     Route: 048

REACTIONS (4)
  - RENAL FAILURE ACUTE [None]
  - GOUT [None]
  - ADVERSE REACTION [None]
  - DEHYDRATION [None]
